FAERS Safety Report 7552277-1 (Version None)
Quarter: 2011Q2

REPORT INFORMATION
  Report Type: 
  Country: None (occurrence: None)
  Receive Date: 20110616
  Receipt Date: 20050311
  Transmission Date: 20111010
  Serious: Yes (Death)
  Sender: FDA-Public Use
  Company Number: PHHO2005JP04241

PATIENT
  Sex: Male
  Weight: 60 kg

DRUGS (7)
  1. OPALMON [Concomitant]
     Indication: ARTERIOSCLEROSIS
     Dosage: UNKNOWN
  2. DIOVAN [Suspect]
     Indication: HYPERTENSION
     Dosage: 80 MG, BID
     Route: 048
     Dates: start: 20021128
  3. SAPRESTA [Concomitant]
     Indication: HYPERTENSION
     Dosage: UNKNOWN
  4. METFORMIN HCL [Concomitant]
     Indication: DIABETES MELLITUS
     Dosage: UNKNOWN
  5. LISINOPRIL [Concomitant]
     Indication: HYPERTENSION
     Dosage: UNKNWON
  6. AMARYL [Concomitant]
     Indication: DIABETES MELLITUS
     Dosage: UNKNOWN
  7. TRICHLORMETHIAZIDE [Concomitant]
     Indication: HYPERTENSION
     Dosage: UNKNOWN

REACTIONS (3)
  - MYOCARDIAL INFARCTION [None]
  - CHEST PAIN [None]
  - SHOCK [None]
